FAERS Safety Report 9540604 (Version 2)
Quarter: 2013Q4

REPORT INFORMATION
  Report Type: Spontaneous
  Country: US (occurrence: US)
  Receive Date: 20130920
  Receipt Date: 20131008
  Transmission Date: 20140711
  Serious: No
  Sender: FDA-Public Use
  Company Number: US-TEVA-433883USA

PATIENT
  Age: 20 Year
  Sex: Female
  Weight: 50.39 kg

DRUGS (1)
  1. PLAN B ONE-STEP [Suspect]
     Indication: POST COITAL CONTRACEPTION
     Dosage: 1.5 MILLIGRAM DAILY;
     Route: 048
     Dates: start: 20130912, end: 20130912

REACTIONS (3)
  - Headache [Recovered/Resolved]
  - Metrorrhagia [Recovered/Resolved]
  - Abdominal pain lower [Recovered/Resolved]
